FAERS Safety Report 6658781-2 (Version None)
Quarter: 2010Q1

REPORT INFORMATION
  Report Type: 
  Country: None (occurrence: None)
  Receive Date: 20100330
  Receipt Date: 20100322
  Transmission Date: 20100710
  Serious: Yes (Other)
  Sender: FDA-Public Use
  Company Number: GXKR2010JP03359

PATIENT
  Age: 58 Year
  Sex: Female

DRUGS (5)
  1. METHYLPREDNISOLONE ACETATE [Suspect]
     Indication: IMMUNOSUPPRESSION
     Dosage: 1 G, UNK
     Route: 065
  2. METHYLPREDNISOLONE ACETATE [Suspect]
     Dosage: 200 MG, DAILY
     Route: 065
  3. METHYLPREDNISOLONE ACETATE [Suspect]
     Dosage: 20 MG, DAILY
     Route: 065
  4. PREDNISOLONE [Suspect]
     Indication: IMMUNOSUPPRESSION
     Dosage: 5 MG, UNK
     Route: 048
  5. CYCLOSPORINE [Suspect]
     Indication: IMMUNOSUPPRESSION

REACTIONS (3)
  - EXTRANODAL MARGINAL ZONE B-CELL LYMPHOMA (MALT TYPE) [None]
  - LUNG LOBECTOMY [None]
  - LUNG NEOPLASM [None]
